FAERS Safety Report 5135236-8 (Version None)
Quarter: 2006Q4

REPORT INFORMATION
  Report Type: 
  Country: None (occurrence: None)
  Receive Date: 20061026
  Receipt Date: 20061016
  Transmission Date: 20070319
  Serious: Yes (Life-Threatening, Hospitalization)
  Sender: FDA-Public Use
  Company Number: US-JNJFOC-20061005559

PATIENT
  Age: 44 Year
  Sex: Male

DRUGS (1)
  1. FENTANYL [Suspect]
     Indication: SUICIDE ATTEMPT

REACTIONS (4)
  - INCORRECT ROUTE OF DRUG ADMINISTRATION [None]
  - INTENTIONAL DRUG MISUSE [None]
  - LETHARGY [None]
  - SUICIDE ATTEMPT [None]
